FAERS Safety Report 8074219-5 (Version None)
Quarter: 2012Q1

REPORT INFORMATION
  Report Type: 
  Country: None (occurrence: None)
  Receive Date: 20120126
  Receipt Date: 20120112
  Transmission Date: 20120608
  Serious: Yes (Other)
  Sender: FDA-Public Use
  Company Number: CA-JNJFOC-20120111175

PATIENT
  Sex: Male
  Weight: 95.5 kg

DRUGS (5)
  1. REMICADE [Suspect]
     Indication: CROHN'S DISEASE
     Dates: start: 20120112
  2. VITAMIN B-12 [Concomitant]
  3. IMURAN [Concomitant]
     Route: 048
  4. REMICADE [Suspect]
     Dosage: 44 INFUSIONS TO DATE
     Dates: start: 20030101
  5. PREVACID [Concomitant]

REACTIONS (1)
  - CANDIDIASIS [None]
